FAERS Safety Report 17380085 (Version 1)
Quarter: 2020Q1

REPORT INFORMATION
  Report Type: Spontaneous
  Country: US (occurrence: US)
  Receive Date: 20200206
  Receipt Date: 20200206
  Transmission Date: 20200409
  Serious: No
  Sender: FDA-Public Use
  Company Number: US-ABBVIE-19K-163-2707955-00

PATIENT
  Age: 40 Year
  Sex: Female
  Weight: 67.37 kg

DRUGS (1)
  1. HUMIRA [Suspect]
     Active Substance: ADALIMUMAB
     Indication: COLITIS ULCERATIVE
     Route: 058
     Dates: start: 20190111, end: 20190221

REACTIONS (3)
  - Hepatic enzyme increased [Unknown]
  - Jaundice [Unknown]
  - Hepatitis B virus test positive [Not Recovered/Not Resolved]

NARRATIVE: CASE EVENT DATE: 20190313
